FAERS Safety Report 10144917 (Version 1)
Quarter: 2014Q2

REPORT INFORMATION
  Report Type: Spontaneous
  Country: US (occurrence: US)
  Receive Date: 20140430
  Receipt Date: 20140430
  Transmission Date: 20141212
  Serious: No
  Sender: FDA-Public Use
  Company Number: US-SA-2014SA003169

PATIENT
  Age: 62 Year
  Sex: Female
  Weight: 94.8 kg

DRUGS (2)
  1. DEMEROL [Suspect]
     Route: 065
     Dates: start: 1994, end: 1994
  2. DEMEROL [Suspect]
     Route: 065
     Dates: start: 1998

REACTIONS (2)
  - Drug hypersensitivity [Unknown]
  - Osteoarthritis [Unknown]
